FAERS Safety Report 12320278 (Version 4)
Quarter: 2016Q2

REPORT INFORMATION
  Report Type: Spontaneous
  Country: JP (occurrence: JP)
  Receive Date: 20160429
  Receipt Date: 20160606
  Transmission Date: 20160815
  Serious: Yes (Other)
  Sender: FDA-Public Use
  Company Number: JP-BAUSCH-BL-2016-009923

PATIENT
  Age: 68 Year
  Sex: Female

DRUGS (5)
  1. OPYSTAN [Concomitant]
     Active Substance: MEPERIDINE
     Indication: ENDOSCOPY LARGE BOWEL
     Route: 042
     Dates: start: 20151210, end: 20151210
  2. SHINLUCK [Concomitant]
     Active Substance: SODIUM PICOSULFATE
     Indication: PRODUCT USED FOR UNKNOWN INDICATION
     Route: 048
     Dates: start: 20151209, end: 20151209
  3. MOVIPREP [Suspect]
     Active Substance: ASCORBIC ACID\POLYETHYLENE GLYCOL 3350\POTASSIUM CHLORIDE\SODIUM ASCORBATE\SODIUM CHLORIDE\SODIUM SULFATE
     Indication: BOWEL PREPARATION
     Route: 048
     Dates: start: 20151210, end: 20151210
  4. CERCINE [Concomitant]
     Active Substance: DIAZEPAM
     Indication: ENDOSCOPY LARGE BOWEL
     Route: 042
     Dates: start: 20151210, end: 20151210
  5. BUSCOPAN [Concomitant]
     Active Substance: BUTYLSCOPOLAMINE BROMIDE
     Indication: ENDOSCOPY LARGE BOWEL
     Route: 042
     Dates: start: 20151210, end: 20151210

REACTIONS (2)
  - Shock [Recovered/Resolved]
  - Nausea [Recovered/Resolved]

NARRATIVE: CASE EVENT DATE: 20151210
